FAERS Safety Report 7330853-9 (Version None)
Quarter: 2011Q1

REPORT INFORMATION
  Report Type: 
  Country: None (occurrence: None)
  Receive Date: 20110304
  Receipt Date: 20110228
  Transmission Date: 20110831
  Serious: No
  Sender: FDA-Public Use
  Company Number: US-PFIZER INC-2010163015

PATIENT
  Sex: Female

DRUGS (8)
  1. CLONAZEPAM [Concomitant]
     Dosage: 1 MG, QHS
  2. NEXIUM [Concomitant]
     Dosage: 40 MG, UNK
  3. CYMBALTA [Suspect]
     Dosage: 30 MG IN AM AND 60 MG IN PM
  4. VICODIN [Suspect]
     Dosage: 7.5 UNK, 4X/DAY
  5. LYRICA [Suspect]
     Indication: FIBROMYALGIA
     Dosage: 50 MG, 3X/DAY
     Route: 048
     Dates: start: 20080925
  6. LYRICA [Suspect]
     Dosage: 100 MG, 3X/DAY
     Route: 048
  7. LYRICA [Suspect]
     Dosage: 200 MG, 3X/DAY
     Dates: start: 20081209
  8. HYDROCODONE [Concomitant]
     Dosage: 5/500 THROCE DAILY

REACTIONS (2)
  - DYSKINESIA [None]
  - TREMOR [None]
